FAERS Safety Report 20473561 (Version 3)
Quarter: 2022Q1

REPORT INFORMATION
  Report Type: Spontaneous
  Country: JP (occurrence: JP)
  Receive Date: 20220215
  Receipt Date: 20220317
  Transmission Date: 20220423
  Serious: Yes (Other)
  Sender: FDA-Public Use
  Company Number: JP-DSJP-DSJ-2022-104520

PATIENT
  Age: 66 Year
  Sex: Male

DRUGS (8)
  1. DENOSUMAB [Suspect]
     Active Substance: DENOSUMAB
     Indication: Metastases to spine
     Dosage: 120 MILLIGRAM, Q4WK
     Route: 058
     Dates: start: 201709
  2. DENOSUMAB [Suspect]
     Active Substance: DENOSUMAB
     Indication: Metastases to bone
  3. DOCETAXEL [Concomitant]
     Active Substance: DOCETAXEL
     Dosage: UNK
     Route: 065
  4. ZYTIGA [Concomitant]
     Active Substance: ABIRATERONE ACETATE
     Dosage: UNK
     Route: 065
  5. PREDONINE [Concomitant]
     Active Substance: PREDNISOLONE
     Dosage: UNK
     Route: 065
  6. CALCIUM CARBONATE\CHOLECALCIFEROL\MAGNESIUM CARBONATE [Concomitant]
     Active Substance: CALCIUM CARBONATE\CHOLECALCIFEROL\MAGNESIUM CARBONATE
     Dosage: UNK
     Route: 065
  7. AMMONIUM GLYCYRRHIZATE\GLYCINE\RACEMETHIONINE [Concomitant]
     Active Substance: AMMONIUM GLYCYRRHIZATE\GLYCINE\RACEMETHIONINE
     Dosage: UNK
     Route: 065
  8. CALONAL [Concomitant]
     Active Substance: ACETAMINOPHEN
     Dosage: UNK
     Route: 065

REACTIONS (4)
  - Spinal cord compression [Unknown]
  - Groin pain [Unknown]
  - Pain in extremity [Unknown]
  - Muscular weakness [Unknown]

NARRATIVE: CASE EVENT DATE: 20171001
